FAERS Safety Report 16283143 (Version 2)
Quarter: 2019Q3

REPORT INFORMATION
  Report Type: Spontaneous
  Country: US (occurrence: US)
  Receive Date: 20190507
  Receipt Date: 20190704
  Transmission Date: 20191004
  Serious: Yes (Other)
  Sender: FDA-Public Use
  Company Number: US-ASTRAZENECA-2019SE67133

PATIENT
  Age: 862 Month
  Sex: Male
  Weight: 95.3 kg

DRUGS (7)
  1. TRAZODONE [Concomitant]
     Active Substance: TRAZODONE HYDROCHLORIDE
     Dosage: 50MG
  2. ELIQUIS [Concomitant]
     Active Substance: APIXABAN
     Indication: CARDIAC DISORDER
  3. ALBUTEROL. [Concomitant]
     Active Substance: ALBUTEROL
     Dosage: AS REQUIRED
     Route: 055
  4. CARVEDILOL. [Concomitant]
     Active Substance: CARVEDILOL
     Indication: CARDIAC DISORDER
     Dosage: 12.5MG UNKNOWN
  5. SYMBICORT [Suspect]
     Active Substance: BUDESONIDE\FORMOTEROL FUMARATE DIHYDRATE
     Indication: CHRONIC OBSTRUCTIVE PULMONARY DISEASE
     Dosage: 160/4.5 MCG, 2 PUFFS TWICE A DAY
     Route: 055
     Dates: start: 2014
  6. SIMVASTATIN. [Concomitant]
     Active Substance: SIMVASTATIN
     Dosage: 20MG
  7. LISINOPRIL. [Suspect]
     Active Substance: LISINOPRIL
     Indication: BLOOD PRESSURE ABNORMAL
     Route: 048

REACTIONS (5)
  - Retinal detachment [Unknown]
  - Intentional product misuse [Unknown]
  - Device issue [Unknown]
  - Cataract [Recovered/Resolved]
  - Therapy change [Unknown]

NARRATIVE: CASE EVENT DATE: 201901
